FAERS Safety Report 22337592 (Version 1)
Quarter: 2023Q2

REPORT INFORMATION
  Report Type: Spontaneous
  Country: US (occurrence: None)
  Receive Date: 20230517
  Receipt Date: 20230517
  Transmission Date: 20230721
  Serious: Yes (Hospitalization)
  Sender: FDA-Public Use
  Company Number: None

PATIENT
  Sex: Female

DRUGS (4)
  1. AMBRISENTAN [Suspect]
     Active Substance: AMBRISENTAN
     Indication: Pulmonary hypertension
     Dosage: FREQUENCY : DAILY;?
     Route: 048
     Dates: start: 202303
  2. AMBRISENTAN [Suspect]
     Active Substance: AMBRISENTAN
  3. ADEMPAS [Suspect]
     Active Substance: RIOCIGUAT
  4. REMODULIN [Suspect]
     Active Substance: TREPROSTINIL

REACTIONS (4)
  - Fatigue [None]
  - Nausea [None]
  - Unevaluable event [None]
  - Product substitution issue [None]
